FAERS Safety Report 4851178-7 (Version None)
Quarter: 2005Q4

REPORT INFORMATION
  Report Type: 
  Country: None (occurrence: None)
  Receive Date: 20051212
  Receipt Date: 20051201
  Transmission Date: 20060501
  Serious: Yes (Other)
  Sender: FDA-Public Use
  Company Number: US-JNJFOC-20051200935

PATIENT
  Sex: Female
  Weight: 58.97 kg

DRUGS (14)
  1. INFLIXIMAB [Suspect]
     Indication: RHEUMATOID ARTHRITIS
     Route: 042
  2. ENBREL [Concomitant]
  3. PLAQUENIL [Concomitant]
  4. PREDNISONE [Concomitant]
  5. ARAVA [Concomitant]
  6. ORTHO NOVUM 2/50 21 TAB [Concomitant]
  7. MULTI-VITAMIN [Concomitant]
  8. MULTI-VITAMIN [Concomitant]
  9. MULTI-VITAMIN [Concomitant]
  10. MULTI-VITAMIN [Concomitant]
  11. MULTI-VITAMIN [Concomitant]
  12. MULTI-VITAMIN [Concomitant]
  13. MULTI-VITAMIN [Concomitant]
  14. MULTI-VITAMIN [Concomitant]

REACTIONS (2)
  - B-CELL LYMPHOMA [None]
  - NON-HODGKIN'S LYMPHOMA [None]
